FAERS Safety Report 6962894-5 (Version None)
Quarter: 2010Q3

REPORT INFORMATION
  Report Type: 
  Country: None (occurrence: None)
  Receive Date: 20100902
  Receipt Date: 20100719
  Transmission Date: 20110219
  Serious: No
  Sender: FDA-Public Use
  Company Number: US-PFIZER INC-2010109589

PATIENT
  Sex: Female
  Weight: 113 kg

DRUGS (7)
  1. ZYVOX [Suspect]
     Indication: STAPHYLOCOCCAL INFECTION
     Dosage: 600 MG, 2X/DAY
     Route: 048
     Dates: start: 20100713
  2. EFFEXOR XR [Suspect]
     Indication: DEPRESSION
     Dosage: 175 MG, 1X/DAY
  3. SYNTHROID [Concomitant]
     Dosage: 100 UG, DAILY
  4. LASIX [Concomitant]
     Dosage: 40 MG, DAILY
  5. SPIRONOLACTONE [Concomitant]
     Dosage: UNK, DAILY
  6. ACYCLOVIR SODIUM [Concomitant]
     Indication: HERPES SIMPLEX
     Dosage: UNK
  7. ACYCLOVIR SODIUM [Concomitant]

REACTIONS (1)
  - DIARRHOEA [None]
